FAERS Safety Report 25414672 (Version 2)
Quarter: 2025Q3

REPORT INFORMATION
  Report Type: Spontaneous
  Country: US (occurrence: US)
  Receive Date: 20250609
  Receipt Date: 20250707
  Transmission Date: 20251020
  Serious: No
  Sender: AMGEN
  Company Number: US-PFIZER INC-202500113295

PATIENT
  Age: 57 Year
  Sex: Female

DRUGS (1)
  1. ENBREL [Suspect]
     Active Substance: ETANERCEPT
     Indication: Rheumatoid arthritis
     Dosage: 1 ML, WEEKLY
     Route: 058

REACTIONS (3)
  - Injection site pain [Unknown]
  - Injection site pain [Unknown]
  - Drug effect less than expected [Unknown]
